FAERS Safety Report 6049572-4 (Version None)
Quarter: 2009Q1

REPORT INFORMATION
  Report Type: 
  Country: None (occurrence: None)
  Receive Date: 20090123
  Receipt Date: 20090112
  Transmission Date: 20090719
  Serious: Yes (Hospitalization)
  Sender: FDA-Public Use
  Company Number: US-PFIZER INC-2009154779

PATIENT
  Sex: Male
  Weight: 79.365 kg

DRUGS (1)
  1. VIAGRA [Suspect]
     Indication: ERECTILE DYSFUNCTION
     Dosage: 100 MG, AS NEEDED
     Route: 048
     Dates: start: 20020101

REACTIONS (8)
  - ACCIDENT [None]
  - BLINDNESS [None]
  - EYEBALL AVULSION [None]
  - HEAD INJURY [None]
  - HIP FRACTURE [None]
  - LOWER LIMB FRACTURE [None]
  - NECK INJURY [None]
  - UPPER LIMB FRACTURE [None]
